FAERS Safety Report 8108298-3 (Version None)
Quarter: 2012Q1

REPORT INFORMATION
  Report Type: 
  Country: None (occurrence: None)
  Receive Date: 20120202
  Receipt Date: 20120120
  Transmission Date: 20120608
  Serious: Yes (Other)
  Sender: FDA-Public Use
  Company Number: PHHY2012DE005556

PATIENT
  Age: 66 Year
  Sex: Female

DRUGS (1)
  1. FEMARA [Suspect]
     Indication: BREAST CANCER
     Dosage: UNK UKN, UNK
     Route: 048

REACTIONS (2)
  - ONYCHOCLASIS [None]
  - INTRAOCULAR PRESSURE INCREASED [None]
